FAERS Safety Report 14216184 (Version 1)
Quarter: 2017Q4

REPORT INFORMATION
  Report Type: Spontaneous
  Country: US (occurrence: US)
  Receive Date: 20171122
  Receipt Date: 20171122
  Transmission Date: 20180321
  Serious: No
  Sender: FDA-Public Use
  Company Number: US-SHIRE-US201727905

PATIENT
  Sex: Female

DRUGS (1)
  1. XIIDRA [Suspect]
     Active Substance: LIFITEGRAST
     Indication: PRODUCT USED FOR UNKNOWN INDICATION
     Dosage: UNK
     Route: 047

REACTIONS (8)
  - Superficial injury of eye [Unknown]
  - Instillation site reaction [Unknown]
  - Dysgeusia [Unknown]
  - Vision blurred [Unknown]
  - Instillation site pain [Unknown]
  - Headache [Unknown]
  - Ocular hyperaemia [Unknown]
  - Instillation site discomfort [Unknown]
